FAERS Safety Report 8214920-3 (Version None)
Quarter: 2012Q1

REPORT INFORMATION
  Report Type: 
  Country: None (occurrence: None)
  Receive Date: 20120316
  Receipt Date: 20120313
  Transmission Date: 20120608
  Serious: Yes (Hospitalization)
  Sender: FDA-Public Use
  Company Number: DE-ABBOTT-10P-062-0666809-00

PATIENT
  Sex: Male
  Weight: 88 kg

DRUGS (2)
  1. TRUVADA [Concomitant]
     Indication: HIV INFECTION
     Dosage: 200MG/245MG
     Dates: start: 20061103
  2. KALETRA [Suspect]
     Indication: HIV INFECTION
     Dosage: 800MG/200MG
     Route: 048
     Dates: start: 20061103

REACTIONS (1)
  - ANOGENITAL WARTS [None]
